FAERS Safety Report 4883069-X (Version None)
Quarter: 2006Q1

REPORT INFORMATION
  Report Type: 
  Country: None (occurrence: None)
  Receive Date: 20060118
  Receipt Date: 20060106
  Transmission Date: 20060701
  Serious: Yes (Hospitalization)
  Sender: FDA-Public Use
  Company Number: FR-AVENTIS-200610071FR

PATIENT
  Age: 92 Year
  Sex: Female

DRUGS (18)
  1. LOVENOX [Suspect]
     Route: 058
     Dates: start: 20051005, end: 20051005
  2. LOVENOX [Suspect]
     Route: 058
     Dates: start: 20051007
  3. PREVISCAN [Suspect]
     Indication: PULMONARY EMBOLISM
     Route: 048
     Dates: start: 20050501, end: 20051001
  4. PREVISCAN [Suspect]
     Route: 048
     Dates: start: 20051012, end: 20051001
  5. TRIATEC [Concomitant]
     Route: 048
     Dates: end: 20051001
  6. LASILIX [Concomitant]
     Route: 048
     Dates: end: 20051001
  7. DI-ANTALVIC [Concomitant]
     Route: 048
     Dates: end: 20051001
  8. COLTRAMYL [Concomitant]
     Route: 048
     Dates: end: 20051001
  9. THYROXINE [Concomitant]
     Route: 048
  10. DETENSIEL [Concomitant]
     Route: 048
  11. PROZAC [Concomitant]
     Route: 048
     Dates: end: 20051001
  12. TRINIPATCH [Concomitant]
     Route: 062
     Dates: end: 20051001
  13. EVISTA [Concomitant]
     Route: 048
  14. MOTILIUM [Concomitant]
     Route: 048
     Dates: end: 20051001
  15. CACIT [Concomitant]
     Dates: end: 20051001
  16. NIFUROXAZIDE [Concomitant]
     Dates: end: 20051001
  17. EFFERALGAN CODEINE [Concomitant]
     Dates: end: 20051001
  18. ATHYMIL [Concomitant]
     Route: 048
     Dates: start: 20051001

REACTIONS (3)
  - COAGULATION TIME PROLONGED [None]
  - INJECTION SITE HAEMORRHAGE [None]
  - INTERNATIONAL NORMALISED RATIO INCREASED [None]
